FAERS Safety Report 4542581-3 (Version None)
Quarter: 2004Q4

REPORT INFORMATION
  Report Type: 
  Country: None (occurrence: None)
  Receive Date: 20041230
  Receipt Date: 20041207
  Transmission Date: 20050328
  Serious: Yes (Disabling)
  Sender: FDA-Public Use
  Company Number: US-MERCK-0412USA00934

PATIENT
  Age: 51 Year
  Sex: Male

DRUGS (2)
  1. VIOXX [Suspect]
     Indication: MONARTHRITIS
     Route: 048
     Dates: start: 20000101, end: 20010101
  2. [THERAPY UNSPECIFIED] [Concomitant]
     Route: 065

REACTIONS (9)
  - ARTHROPATHY [None]
  - ASTHMA [None]
  - BACK DISORDER [None]
  - CHEST PAIN [None]
  - DYSPHAGIA [None]
  - DYSPNOEA [None]
  - HEART RATE INCREASED [None]
  - HYPERTENSION [None]
  - STOMACH DISCOMFORT [None]
